FAERS Safety Report 6081324-1 (Version None)
Quarter: 2009Q1

REPORT INFORMATION
  Report Type: 
  Country: None (occurrence: None)
  Receive Date: 20090212
  Receipt Date: 20090202
  Transmission Date: 20090719
  Serious: Yes (Hospitalization)
  Sender: FDA-Public Use
  Company Number: 200914614

PATIENT
  Age: 62 Year
  Sex: Female

DRUGS (1)
  1. IMMUNE GLOBULIN (HUMAN) [Suspect]
     Dosage: IV
     Route: 042

REACTIONS (4)
  - DYSPNOEA [None]
  - ELECTROCARDIOGRAM CHANGE [None]
  - LARYNGOSPASM [None]
  - OXYGEN SATURATION DECREASED [None]
